FAERS Safety Report 9309789 (Version 1)
Quarter: 2013Q2

REPORT INFORMATION
  Report Type: Spontaneous
  Country: US (occurrence: US)
  Receive Date: 20130525
  Receipt Date: 20130525
  Transmission Date: 20140414
  Serious: No
  Sender: FDA-Public Use
  Company Number: US-BRISTOL-MYERS SQUIBB COMPANY-18587444

PATIENT
  Age: 64 Year
  Sex: Female
  Weight: 90.7 kg

DRUGS (5)
  1. BYDUREON 2MG VIAL + SYRINGE [Suspect]
     Indication: INSULIN-REQUIRING TYPE 2 DIABETES MELLITUS
     Route: 058
     Dates: start: 20121102
  2. NOVOLOG [Concomitant]
     Indication: INSULIN-REQUIRING TYPE 2 DIABETES MELLITUS
     Route: 058
     Dates: start: 20121102
  3. LEVEMIR [Concomitant]
     Indication: INSULIN-REQUIRING TYPE 2 DIABETES MELLITUS
     Route: 058
     Dates: start: 20121102
  4. JANUVIA [Concomitant]
     Indication: TYPE 2 DIABETES MELLITUS
     Route: 048
     Dates: end: 20121101
  5. ACTOS [Concomitant]
     Indication: TYPE 2 DIABETES MELLITUS
     Route: 048
     Dates: end: 20121101

REACTIONS (5)
  - Injection site dryness [Recovered/Resolved]
  - Injection site pain [Recovering/Resolving]
  - Injection site haemorrhage [Recovering/Resolving]
  - Underdose [Recovered/Resolved]
  - Off label use [Not Recovered/Not Resolved]
